FAERS Safety Report 9761555 (Version 2)
Quarter: 2014Q1

REPORT INFORMATION
  Report Type: Spontaneous
  Country: US (occurrence: US)
  Receive Date: 20131216
  Receipt Date: 20140227
  Transmission Date: 20141002
  Serious: Yes (Hospitalization)
  Sender: FDA-Public Use
  Company Number: US-TEVA-450990USA

PATIENT
  Age: 60 Year
  Sex: Male
  Weight: 60.38 kg

DRUGS (6)
  1. CLOZAPINE [Suspect]
     Dosage: 250 MILLIGRAM DAILY;
  2. CLOZAPINE [Suspect]
     Dosage: 200 MILLIGRAM DAILY;
  3. CLOZAPINE [Suspect]
     Dosage: 175 MILLIGRAM DAILY;
  4. LEVOTHYROXINE [Concomitant]
     Indication: HYPOTHYROIDISM
  5. CELEXA [Concomitant]
     Dosage: 20 MILLIGRAM DAILY;
  6. DEPAKOTE [Concomitant]
     Dosage: 750 MILLIGRAM DAILY;

REACTIONS (4)
  - Toxicity to various agents [Recovered/Resolved]
  - Ataxia [Recovered/Resolved]
  - Fall [Recovered/Resolved]
  - Feeling abnormal [Recovered/Resolved]
